FAERS Safety Report 25005473 (Version 4)
Quarter: 2025Q3

REPORT INFORMATION
  Report Type: Spontaneous
  Country: GB (occurrence: GB)
  Receive Date: 20250224
  Receipt Date: 20250909
  Transmission Date: 20251020
  Serious: Yes (Hospitalization, Other)
  Sender: MYLAN
  Company Number: GB-MYLANLABS-2025M1015342

PATIENT
  Sex: Female
  Weight: 114 kg

DRUGS (48)
  1. CLOZARIL [Suspect]
     Active Substance: CLOZAPINE
     Indication: Schizophrenia
     Dosage: UNK, BID (100MG MANE 225MG NOCTE)
     Dates: start: 20180919
  2. CLOZARIL [Suspect]
     Active Substance: CLOZAPINE
     Dosage: UNK, BID (100MG MANE 225MG NOCTE)
     Route: 048
     Dates: start: 20180919
  3. CLOZARIL [Suspect]
     Active Substance: CLOZAPINE
     Dosage: UNK, BID (100MG MANE 225MG NOCTE)
     Route: 048
     Dates: start: 20180919
  4. CLOZARIL [Suspect]
     Active Substance: CLOZAPINE
     Dosage: UNK, BID (100MG MANE 225MG NOCTE)
     Dates: start: 20180919
  5. CLOZARIL [Suspect]
     Active Substance: CLOZAPINE
     Dates: start: 20250108, end: 20250211
  6. CLOZARIL [Suspect]
     Active Substance: CLOZAPINE
     Route: 048
     Dates: start: 20250108, end: 20250211
  7. CLOZARIL [Suspect]
     Active Substance: CLOZAPINE
     Dates: start: 20250108, end: 20250211
  8. CLOZARIL [Suspect]
     Active Substance: CLOZAPINE
     Route: 048
     Dates: start: 20250108, end: 20250211
  9. CLOZARIL [Suspect]
     Active Substance: CLOZAPINE
     Route: 065
  10. CLOZARIL [Suspect]
     Active Substance: CLOZAPINE
     Route: 065
  11. CLOZARIL [Suspect]
     Active Substance: CLOZAPINE
  12. CLOZARIL [Suspect]
     Active Substance: CLOZAPINE
  13. ZUCLOPENTHIXOL [Suspect]
     Active Substance: ZUCLOPENTHIXOL
     Indication: Product used for unknown indication
  14. ZUCLOPENTHIXOL [Suspect]
     Active Substance: ZUCLOPENTHIXOL
     Route: 048
  15. ZUCLOPENTHIXOL [Suspect]
     Active Substance: ZUCLOPENTHIXOL
     Route: 048
  16. ZUCLOPENTHIXOL [Suspect]
     Active Substance: ZUCLOPENTHIXOL
  17. OLANZAPINE [Suspect]
     Active Substance: OLANZAPINE
     Indication: Product used for unknown indication
  18. OLANZAPINE [Suspect]
     Active Substance: OLANZAPINE
     Route: 048
  19. OLANZAPINE [Suspect]
     Active Substance: OLANZAPINE
     Route: 048
  20. OLANZAPINE [Suspect]
     Active Substance: OLANZAPINE
  21. ARIPIPRAZOLE [Concomitant]
     Active Substance: ARIPIPRAZOLE
     Dosage: 30 MILLIGRAM, AM (MORNING)
     Dates: end: 202502
  22. ARIPIPRAZOLE [Concomitant]
     Active Substance: ARIPIPRAZOLE
     Dosage: 30 MILLIGRAM, AM (MORNING)
     Route: 065
     Dates: end: 202502
  23. ARIPIPRAZOLE [Concomitant]
     Active Substance: ARIPIPRAZOLE
     Dosage: 30 MILLIGRAM, AM (MORNING)
     Route: 065
     Dates: end: 202502
  24. ARIPIPRAZOLE [Concomitant]
     Active Substance: ARIPIPRAZOLE
     Dosage: 30 MILLIGRAM, AM (MORNING)
     Dates: end: 202502
  25. LITHIUM [Concomitant]
     Active Substance: LITHIUM
  26. LITHIUM [Concomitant]
     Active Substance: LITHIUM
     Route: 065
  27. LITHIUM [Concomitant]
     Active Substance: LITHIUM
     Route: 065
  28. LITHIUM [Concomitant]
     Active Substance: LITHIUM
  29. VENLAFAXINE [Concomitant]
     Active Substance: VENLAFAXINE HYDROCHLORIDE
  30. VENLAFAXINE [Concomitant]
     Active Substance: VENLAFAXINE HYDROCHLORIDE
     Route: 065
  31. VENLAFAXINE [Concomitant]
     Active Substance: VENLAFAXINE HYDROCHLORIDE
     Route: 065
  32. VENLAFAXINE [Concomitant]
     Active Substance: VENLAFAXINE HYDROCHLORIDE
  33. LISINOPRIL [Concomitant]
     Active Substance: LISINOPRIL
  34. LISINOPRIL [Concomitant]
     Active Substance: LISINOPRIL
     Route: 065
  35. LISINOPRIL [Concomitant]
     Active Substance: LISINOPRIL
     Route: 065
  36. LISINOPRIL [Concomitant]
     Active Substance: LISINOPRIL
  37. LEVOTHYROXINE [Concomitant]
     Active Substance: LEVOTHYROXINE
     Dosage: 50 MICROGRAM, QD
  38. LEVOTHYROXINE [Concomitant]
     Active Substance: LEVOTHYROXINE
     Dosage: 50 MICROGRAM, QD
     Route: 065
  39. LEVOTHYROXINE [Concomitant]
     Active Substance: LEVOTHYROXINE
     Dosage: 50 MICROGRAM, QD
     Route: 065
  40. LEVOTHYROXINE [Concomitant]
     Active Substance: LEVOTHYROXINE
     Dosage: 50 MICROGRAM, QD
  41. FOLIC ACID [Concomitant]
     Active Substance: FOLIC ACID
     Dosage: 5 MILLIGRAM, QD
  42. FOLIC ACID [Concomitant]
     Active Substance: FOLIC ACID
     Dosage: 5 MILLIGRAM, QD
     Route: 065
  43. FOLIC ACID [Concomitant]
     Active Substance: FOLIC ACID
     Dosage: 5 MILLIGRAM, QD
     Route: 065
  44. FOLIC ACID [Concomitant]
     Active Substance: FOLIC ACID
     Dosage: 5 MILLIGRAM, QD
  45. ATORVASTATIN [Concomitant]
     Active Substance: ATORVASTATIN
     Dosage: 20 MILLIGRAM, QD
  46. ATORVASTATIN [Concomitant]
     Active Substance: ATORVASTATIN
     Dosage: 20 MILLIGRAM, QD
     Route: 065
  47. ATORVASTATIN [Concomitant]
     Active Substance: ATORVASTATIN
     Dosage: 20 MILLIGRAM, QD
     Route: 065
  48. ATORVASTATIN [Concomitant]
     Active Substance: ATORVASTATIN
     Dosage: 20 MILLIGRAM, QD

REACTIONS (6)
  - Schizoaffective disorder [Unknown]
  - Disease recurrence [Unknown]
  - Neuroleptic malignant syndrome [Recovered/Resolved]
  - Lower respiratory tract infection [Unknown]
  - Catatonia [Unknown]
  - Urinary tract infection [Unknown]

NARRATIVE: CASE EVENT DATE: 20250101
